FAERS Safety Report 9272906 (Version 1)
Quarter: 2013Q2

REPORT INFORMATION
  Report Type: Spontaneous
  Country: CA (occurrence: CA)
  Receive Date: 20130506
  Receipt Date: 20130506
  Transmission Date: 20140414
  Serious: Yes (Other)
  Sender: FDA-Public Use
  Company Number: CA-VERTEX PHARMACEUTICALS INC-2013-005747

PATIENT
  Sex: 0

DRUGS (2)
  1. INCIVEK [Suspect]
     Indication: HEPATITIS C
  2. PEGETRON [Suspect]
     Indication: HEPATITIS C

REACTIONS (1)
  - Pancreatitis acute [Unknown]
